FAERS Safety Report 7036410-6 (Version None)
Quarter: 2010Q4

REPORT INFORMATION
  Report Type: 
  Country: None (occurrence: None)
  Receive Date: 20101010
  Receipt Date: 20100929
  Transmission Date: 20110411
  Serious: Yes (Other)
  Sender: FDA-Public Use
  Company Number: PHHY2010JP64832

PATIENT
  Age: 76 Year
  Sex: Female

DRUGS (3)
  1. ZOMETA [Suspect]
     Indication: METASTASES TO BONE
     Dosage: UNK
     Route: 041
     Dates: start: 20061001, end: 20091225
  2. FEMARA [Concomitant]
     Indication: BREAST CANCER
     Dosage: UNK
     Dates: start: 20090401, end: 20091225
  3. TAXOTERE [Concomitant]
     Indication: BREAST CANCER
     Dosage: UNK
     Dates: end: 20090428

REACTIONS (1)
  - OSTEONECROSIS OF JAW [None]
